FAERS Safety Report 20087580 (Version 1)
Quarter: 2021Q4

REPORT INFORMATION
  Report Type: Spontaneous
  Country: ES (occurrence: ES)
  Receive Date: 20211118
  Receipt Date: 20211118
  Transmission Date: 20220303
  Serious: Yes (Death, Hospitalization)
  Sender: FDA-Public Use
  Company Number: ES-Accord-244593

PATIENT
  Age: 87 Year
  Sex: Female
  Weight: 66.8 kg

DRUGS (7)
  1. GEMCITABINE HYDROCHLORIDE [Suspect]
     Active Substance: GEMCITABINE HYDROCHLORIDE
     Dosage: 1667 MG/M2; REGIMEN 1
     Route: 042
     Dates: start: 20210914, end: 20210928
  2. OXALIPLATIN [Suspect]
     Active Substance: OXALIPLATIN
     Dosage: 166.7 MG/M2; REGIMEN 1
     Route: 042
     Dates: start: 20210914, end: 20210928
  3. EPCORITAMAB [Suspect]
     Active Substance: EPCORITAMAB
     Dosage: 0.16 MG
     Route: 058
     Dates: start: 20210914, end: 20210914
  4. EPCORITAMAB [Suspect]
     Active Substance: EPCORITAMAB
     Dosage: 0.8 MG, REGIMEN 1 PRIMING DOSE
     Route: 058
     Dates: start: 20210921, end: 20210921
  5. EPCORITAMAB [Suspect]
     Active Substance: EPCORITAMAB
     Dosage: UNKNOWN
     Route: 058
     Dates: start: 20210928, end: 20210928
  6. DEXCHLORPHENIRAMINE [Concomitant]
     Active Substance: DEXCHLORPHENIRAMINE
     Dosage: 5 MG
     Route: 042
     Dates: start: 20210928, end: 20210928
  7. ACETAMINOPHEN [Concomitant]
     Active Substance: ACETAMINOPHEN
     Dosage: 1 G
     Route: 048
     Dates: start: 20210928, end: 20210928

REACTIONS (3)
  - Death [Fatal]
  - Hypokalaemia [Recovering/Resolving]
  - Cytokine release syndrome [Recovering/Resolving]

NARRATIVE: CASE EVENT DATE: 20210930
